FAERS Safety Report 6041441-9 (Version None)
Quarter: 2009Q1

REPORT INFORMATION
  Report Type: 
  Country: None (occurrence: None)
  Receive Date: 20090116
  Receipt Date: 20081031
  Transmission Date: 20090719
  Serious: No
  Sender: FDA-Public Use
  Company Number: US-BRISTOL-MYERS SQUIBB COMPANY-14371132

PATIENT
  Sex: Female

DRUGS (1)
  1. ABILIFY [Suspect]
     Dosage: TAKEN FOR 4 - 5 YRS STOPPED 2 WEEKS AGO

REACTIONS (5)
  - HEPATIC ENZYME INCREASED [None]
  - HEPATOMEGALY [None]
  - SWELLING [None]
  - TREMOR [None]
  - VOMITING [None]
